FAERS Safety Report 8602381-1 (Version None)
Quarter: 2012Q3

REPORT INFORMATION
  Report Type: 
  Country: None (occurrence: None)
  Receive Date: 20120817
  Receipt Date: 20120803
  Transmission Date: 20120928
  Serious: Yes (Hospitalization, Other)
  Sender: FDA-Public Use
  Company Number: JP-ROCHE-1068639

PATIENT
  Age: 55 Year
  Sex: Female

DRUGS (10)
  1. PEGINTERFERON ALFA-2B [Suspect]
     Route: 042
     Dates: start: 20120409
  2. PEGINTERFERON ALFA-2B [Suspect]
     Route: 042
     Dates: end: 20120709
  3. RIBAVIRIN [Suspect]
     Indication: HEPATITIS C
     Route: 048
     Dates: start: 20120131, end: 20120408
  4. SLOW-K [Concomitant]
     Route: 048
  5. RIBAVIRIN [Suspect]
     Route: 048
     Dates: start: 20120409, end: 20120717
  6. PROMAC D [Concomitant]
     Route: 048
     Dates: start: 20120521
  7. TORSEMIDE [Suspect]
     Indication: FACE OEDEMA
     Route: 048
     Dates: start: 20120326, end: 20120405
  8. OLOPATADINE HCL [Concomitant]
     Route: 048
     Dates: start: 20120502
  9. INCIVEK [Suspect]
     Indication: HEPATITIS C
     Route: 048
     Dates: start: 20120131, end: 20120327
  10. PEGINTERFERON ALFA-2B [Suspect]
     Indication: HEPATITIS C
     Route: 042
     Dates: start: 20120131, end: 20120402

REACTIONS (6)
  - FACE OEDEMA [None]
  - PRURITUS [None]
  - HYPOKALAEMIA [None]
  - DIZZINESS [None]
  - NAUSEA [None]
  - VOMITING [None]
